FAERS Safety Report 6793266-4 (Version None)
Quarter: 2010Q2

REPORT INFORMATION
  Report Type: 
  Country: None (occurrence: None)
  Receive Date: 20100624
  Receipt Date: 20091106
  Transmission Date: 20101027
  Serious: Yes (Death)
  Sender: FDA-Public Use
  Company Number: US-MYLANLABS-2009S1017665

PATIENT
  Age: 60 Year
  Sex: Male
  Weight: 93.9 kg

DRUGS (2)
  1. CLOZAPINE [Suspect]
     Indication: PSYCHOTIC DISORDER
     Route: 048
     Dates: start: 20081201, end: 20090701
  2. CLOZAPINE [Suspect]
     Indication: PARKINSON'S DISEASE
     Route: 048
     Dates: start: 20081201, end: 20090701

REACTIONS (1)
  - PNEUMONIA ASPIRATION [None]
